FAERS Safety Report 19503207 (Version 5)
Quarter: 2022Q1

REPORT INFORMATION
  Report Type: Spontaneous
  Country: JP (occurrence: JP)
  Receive Date: 20210707
  Receipt Date: 20220304
  Transmission Date: 20220423
  Serious: Yes (Hospitalization, Other)
  Sender: FDA-Public Use
  Company Number: JP-BRISTOL-MYERS SQUIBB COMPANY-BMS-2021-024732

PATIENT
  Age: 66 Year
  Sex: Female
  Weight: 40 kg

DRUGS (8)
  1. YERVOY [Suspect]
     Active Substance: IPILIMUMAB
     Indication: Non-small cell lung cancer recurrent
     Dosage: 42 MILLIGRAM, QD
     Route: 041
     Dates: start: 20210209, end: 20210209
  2. OPDIVO [Suspect]
     Active Substance: NIVOLUMAB
     Indication: Non-small cell lung cancer recurrent
     Dosage: 360 MILLIGRAM, QD
     Route: 041
     Dates: start: 20210209, end: 20210209
  3. ALIMTA [Suspect]
     Active Substance: PEMETREXED DISODIUM
     Indication: Non-small cell lung cancer recurrent
     Dosage: 679 MILLIGRAM, QD
     Route: 041
     Dates: start: 20210209, end: 20210209
  4. CARBOPLATIN [Suspect]
     Active Substance: CARBOPLATIN
     Indication: Non-small cell lung cancer recurrent
     Dosage: 435 MILLIGRAM, QD
     Route: 041
     Dates: start: 20210209, end: 20210209
  5. CARBOPLATIN [Suspect]
     Active Substance: CARBOPLATIN
     Dosage: 610 MILLIGRAM
     Route: 041
     Dates: start: 20210607, end: 20210607
  6. FUROSEMIDE [Concomitant]
     Active Substance: FUROSEMIDE
     Indication: Prophylaxis
     Dosage: 1 TAB, QD
     Route: 048
  7. MAGNESIUM OXIDE [Concomitant]
     Active Substance: MAGNESIUM OXIDE
     Indication: Prophylaxis
     Dosage: 1 TAB, TID
     Route: 048
  8. PANVITAN BABY [Concomitant]
     Indication: Prophylaxis
     Dosage: 1 GRAM, QD
     Route: 048

REACTIONS (4)
  - Radiation pneumonitis [Recovering/Resolving]
  - Pneumonia [Recovering/Resolving]
  - Fatigue [Recovering/Resolving]
  - Decreased appetite [Recovering/Resolving]

NARRATIVE: CASE EVENT DATE: 20210302
